FAERS Safety Report 22346026 (Version 4)
Quarter: 2023Q2

REPORT INFORMATION
  Report Type: Spontaneous
  Country: US (occurrence: US)
  Receive Date: 20230519
  Receipt Date: 20230627
  Transmission Date: 20230722
  Serious: Yes (Hospitalization, Other)
  Sender: FDA-Public Use
  Company Number: US-PFIZER INC-202300193440

PATIENT
  Age: 65 Year
  Sex: Male
  Weight: 61.678 kg

DRUGS (2)
  1. REGADENOSON [Suspect]
     Active Substance: REGADENOSON
     Indication: Scan myocardial perfusion
     Dosage: 5 ML, SINGLE
     Route: 042
     Dates: start: 20230515, end: 20230515
  2. TETROFOSMIN [Concomitant]
     Active Substance: TETROFOSMIN
     Indication: Scan myocardial perfusion
     Dosage: DURATION OF TREATMENT: 5 SECONDS
     Dates: start: 20230515, end: 20230515

REACTIONS (3)
  - Blood pressure decreased [Unknown]
  - Presyncope [Recovered/Resolved]
  - Unresponsive to stimuli [Unknown]

NARRATIVE: CASE EVENT DATE: 20230515
